FAERS Safety Report 11069174 (Version 1)
Quarter: 2015Q2

REPORT INFORMATION
  Report Type: Spontaneous
  Country: US (occurrence: US)
  Receive Date: 20150427
  Receipt Date: 20150427
  Transmission Date: 20150821
  Serious: Yes (Life-Threatening, Hospitalization, Other)
  Sender: FDA-Public Use
  Company Number: US-ELI_LILLY_AND_COMPANY-US201301008641

PATIENT
  Age: 16 Year
  Sex: Male
  Weight: 111.57 kg

DRUGS (3)
  1. PROZAC [Suspect]
     Active Substance: FLUOXETINE HYDROCHLORIDE
     Indication: MAJOR DEPRESSION
     Dosage: 20 MG, QD
     Route: 048
     Dates: start: 20120908, end: 20121129
  2. HUMAN PAPILLOMA VACCINE [Concomitant]
     Active Substance: HUMAN PAPILLOMAVIRUS VACCINE
  3. VITAMIN D3 [Concomitant]
     Active Substance: CHOLECALCIFEROL
     Dosage: 50000 IU, WEEKLY (1/W)
     Dates: start: 20120919

REACTIONS (4)
  - Somnolence [Unknown]
  - Suicide attempt [Recovered/Resolved]
  - Drug dependence [Recovering/Resolving]
  - Intentional overdose [Recovered/Resolved]

NARRATIVE: CASE EVENT DATE: 20121129
